FAERS Safety Report 6344452-9 (Version None)
Quarter: 2009Q3

REPORT INFORMATION
  Report Type: 
  Country: None (occurrence: None)
  Receive Date: 20090908
  Receipt Date: 20090826
  Transmission Date: 20100115
  Serious: Yes (Hospitalization)
  Sender: FDA-Public Use
  Company Number: US-ELI_LILLY_AND_COMPANY-US200908006092

PATIENT
  Sex: Female

DRUGS (4)
  1. ZYPREXA [Suspect]
     Indication: DELUSIONAL DISORDER, UNSPECIFIED TYPE
     Dosage: 10 MG, DAILY (1/D)
     Dates: start: 19990101
  2. ZYPREXA ZYDIS [Suspect]
     Indication: DELUSIONAL DISORDER, UNSPECIFIED TYPE
     Dosage: 10 MG, DAILY (1/D)
     Dates: start: 20030101
  3. ZYPREXA ZYDIS [Suspect]
     Dosage: 30 MG, DAILY (1/D)
  4. RISPERIDONE [Concomitant]

REACTIONS (14)
  - ABDOMINAL PAIN [None]
  - BLOOD GLUCOSE ABNORMAL [None]
  - BURNING SENSATION [None]
  - DELUSIONAL DISORDER, UNSPECIFIED TYPE [None]
  - DISTURBANCE IN ATTENTION [None]
  - DRUG DEPENDENCE [None]
  - DRUG INEFFECTIVE [None]
  - FATIGUE [None]
  - HUNGER [None]
  - HYPERHIDROSIS [None]
  - OVERDOSE [None]
  - PANIC ATTACK [None]
  - THIRST [None]
  - WEIGHT INCREASED [None]
